FAERS Safety Report 16121305 (Version 1)
Quarter: 2019Q1

REPORT INFORMATION
  Report Type: Spontaneous
  Country: PT (occurrence: PT)
  Receive Date: 20190327
  Receipt Date: 20190327
  Transmission Date: 20190418
  Serious: Yes (Hospitalization, Other)
  Sender: FDA-Public Use
  Company Number: PT-ACCORD-115615

PATIENT
  Age: 29 Year
  Sex: Male

DRUGS (2)
  1. MICARDIS [Suspect]
     Active Substance: TELMISARTAN
     Indication: NEPHROPATHY
     Dosage: UNK
  2. ATORVASTATIN/ATORVASTATIN CALCIUM [Suspect]
     Active Substance: ATORVASTATIN CALCIUM
     Indication: RENAL HYPERTENSION
     Dosage: UNK

REACTIONS (2)
  - IgA nephropathy [Unknown]
  - Renal impairment [Unknown]
